FAERS Safety Report 9342368 (Version 2)
Quarter: 2013Q2

REPORT INFORMATION
  Report Type: Spontaneous
  Country: CN (occurrence: CN)
  Receive Date: 20130611
  Receipt Date: 20130619
  Transmission Date: 20140414
  Serious: Yes (Other)
  Sender: FDA-Public Use
  Company Number: CN-BAYER-2013-068375

PATIENT
  Age: 76 Year
  Sex: Male

DRUGS (5)
  1. BAYASPIRIN [Suspect]
     Indication: CARDIAC OPERATION
     Dosage: 1 DF, QD FTER BREAKFAST EVERY DAY
     Route: 048
     Dates: start: 2008
  2. BENAZEPRIL HYDROCHLORIDE [Concomitant]
  3. LIPITOR [Concomitant]
  4. INSULIN [Concomitant]
  5. GLUCOBAY [Concomitant]
     Dosage: UNK

REACTIONS (1)
  - Coronary artery stenosis [None]
